FAERS Safety Report 23595566 (Version 3)
Quarter: 2024Q2

REPORT INFORMATION
  Report Type: Spontaneous
  Country: US (occurrence: US)
  Receive Date: 20240305
  Receipt Date: 20240523
  Transmission Date: 20240716
  Serious: Yes (Other)
  Sender: FDA-Public Use
  Company Number: US-BRISTOL-MYERS SQUIBB COMPANY-2024-033839

PATIENT
  Age: 57 Year
  Sex: Male
  Weight: 127.91 kg

DRUGS (3)
  1. LENALIDOMIDE [Suspect]
     Active Substance: LENALIDOMIDE
     Indication: Plasma cell myeloma
     Route: 048
     Dates: start: 2017
  2. LENALIDOMIDE [Suspect]
     Active Substance: LENALIDOMIDE
     Dosage: FREQUENCY: D 1-21 Q 28 DAYS
     Route: 048
     Dates: start: 20230729
  3. LENALIDOMIDE [Suspect]
     Active Substance: LENALIDOMIDE
     Dosage: FREQUENCY: DAILY X 21 DAYS, EVERY 28 DAYS
     Route: 048
     Dates: start: 2024

REACTIONS (4)
  - Nasopharyngitis [Recovered/Resolved]
  - Cardiac ventricular thrombosis [Recovered/Resolved]
  - White blood cell count decreased [Not Recovered/Not Resolved]
  - Blood creatine abnormal [Recovering/Resolving]
